FAERS Safety Report 7689445-4 (Version None)
Quarter: 2011Q3

REPORT INFORMATION
  Report Type: 
  Country: None (occurrence: None)
  Receive Date: 20110817
  Receipt Date: 20110811
  Transmission Date: 20111222
  Serious: Yes (Life-Threatening, Hospitalization, Other)
  Sender: FDA-Public Use
  Company Number: NO-PFIZER INC-2011095464

PATIENT
  Age: 62 Year
  Sex: Male

DRUGS (10)
  1. CETIRIZINE [Concomitant]
     Dosage: 10 MG, 1X/DAY
  2. PANTOPRAZOLE [Concomitant]
     Dosage: 40 MG, 1X/DAY
  3. LAXOBERAL [Concomitant]
  4. SUTENT [Suspect]
     Indication: ADRENOCORTICAL CARCINOMA
     Dosage: 50 MG, 1X/DAY
     Dates: start: 20110415, end: 20110502
  5. PENICILLIN V POTASSIUM [Concomitant]
  6. SAROTEX [Concomitant]
  7. CIPROFLAXACIN [Concomitant]
  8. PREDNISOLONE [Concomitant]
     Dosage: 25 MG, 2X/DAY
  9. LYRICA [Concomitant]
  10. MYCOSTATIN [Concomitant]

REACTIONS (3)
  - ELECTROCARDIOGRAM QT PROLONGED [None]
  - CARDIAC ARREST [None]
  - VENTRICULAR FIBRILLATION [None]
